FAERS Safety Report 5659977-9 (Version None)
Quarter: 2008Q1

REPORT INFORMATION
  Report Type: 
  Country: None (occurrence: None)
  Receive Date: 20080311
  Receipt Date: 20070817
  Transmission Date: 20080703
  Serious: No
  Sender: FDA-Public Use
  Company Number: US-BAYER-200712673BCC

PATIENT
  Age: 91 Year
  Sex: Female
  Weight: 52 kg

DRUGS (6)
  1. ALEVE [Suspect]
     Indication: BACK PAIN
     Dosage: TOTAL DAILY DOSE: 440 MG  UNIT DOSE: 220 MG
     Route: 048
     Dates: start: 20070803, end: 20070816
  2. CALCIUM [Concomitant]
  3. CRANBERRY [Concomitant]
  4. ATENOLOL [Concomitant]
  5. LEVAQUIN [Concomitant]
  6. DARVOCET [Concomitant]

REACTIONS (1)
  - DIARRHOEA [None]
